FAERS Safety Report 18355999 (Version 1)
Quarter: 2020Q4

REPORT INFORMATION
  Report Type: Spontaneous
  Country: CZ (occurrence: CZ)
  Receive Date: 20201007
  Receipt Date: 20201007
  Transmission Date: 20210114
  Serious: Yes (Other)
  Sender: FDA-Public Use
  Company Number: CZ-BAUSCH-BL-2020-028178

PATIENT
  Age: 20 Year
  Sex: Female

DRUGS (12)
  1. FLOXAL [Suspect]
     Active Substance: OFLOXACIN
     Indication: OCULAR ROSACEA
     Dosage: IN OU
     Route: 065
  2. FLUCON (FLUOROMETHOLONE) [Suspect]
     Active Substance: FLUOROMETHOLONE
     Indication: OCULAR ROSACEA
     Dosage: OD
     Route: 065
  3. EFFLUMIDEX [Concomitant]
     Indication: OCULAR ROSACEA
     Dosage: FIVE TIMES A DAY IN BOTH EYES
     Route: 065
  4. ARTIFICIAL TEARS [Suspect]
     Active Substance: GLYCERIN\HYPROMELLOSES\POLYETHYLENE GLYCOL 400
     Indication: OCULAR ROSACEA
     Route: 061
  5. FLUCON (FLUOROMETHOLONE) [Suspect]
     Active Substance: FLUOROMETHOLONE
     Dosage: OS
     Route: 065
  6. FLOXAL [Suspect]
     Active Substance: OFLOXACIN
     Indication: OCULAR ROSACEA
     Route: 061
  7. OPATANOL [Suspect]
     Active Substance: OLOPATADINE
     Indication: OCULAR ROSACEA
     Route: 061
  8. DEXAMETHASONE. [Suspect]
     Active Substance: DEXAMETHASONE
     Indication: OCULAR ROSACEA
     Dosage: IN BOTH EYES TOGETHER
     Route: 061
  9. OPATANOL [Suspect]
     Active Substance: OLOPATADINE
     Dosage: IN OU
     Route: 061
  10. IKERVIS [Suspect]
     Active Substance: CYCLOSPORINE
     Indication: OCULAR ROSACEA
     Dosage: AT NIGHT IN OU
     Route: 065
  11. AZITHROMYCIN ANHYDROUS. [Concomitant]
     Active Substance: AZITHROMYCIN ANHYDROUS
     Indication: OCULAR ROSACEA
     Route: 065
  12. SOOLANTRA [Suspect]
     Active Substance: IVERMECTIN
     Indication: OCULAR ROSACEA
     Route: 061

REACTIONS (3)
  - Treatment noncompliance [Unknown]
  - Maternal exposure during pregnancy [Unknown]
  - Rosacea [Recovered/Resolved]
